FAERS Safety Report 5582703-9 (Version None)
Quarter: 2008Q1

REPORT INFORMATION
  Report Type: 
  Country: None (occurrence: None)
  Receive Date: 20080107
  Receipt Date: 20080103
  Transmission Date: 20080703
  Serious: Yes (Hospitalization)
  Sender: FDA-Public Use
  Company Number: IT-BRISTOL-MYERS SQUIBB COMPANY-14030555

PATIENT
  Age: 73 Year
  Sex: Male

DRUGS (7)
  1. COUMADIN [Suspect]
     Indication: HEART VALVE REPLACEMENT
     Dosage: THERAPY WITH WARFARIN SODIUM WAS RESTARTED.
     Route: 048
     Dates: start: 19990101, end: 20071119
  2. LOSAPREX [Concomitant]
  3. LASIX [Concomitant]
     Dosage: TABLETS
  4. SIMVASTATIN [Concomitant]
  5. NEXIUM [Concomitant]
  6. DIAMICRON [Concomitant]
     Dosage: TABLETS
  7. GLUCOPHAGE [Concomitant]

REACTIONS (2)
  - ANAEMIA [None]
  - CARDIAC FAILURE [None]
